FAERS Safety Report 21265851 (Version 1)
Quarter: 2022Q3

REPORT INFORMATION
  Report Type: Spontaneous
  Country: US (occurrence: None)
  Receive Date: 20220828
  Receipt Date: 20220828
  Transmission Date: 20221027
  Serious: No
  Sender: FDA-Public Use
  Company Number: None

PATIENT
  Age: 25 Year
  Sex: Female
  Weight: 60.3 kg

DRUGS (1)
  1. NEXPLANON [Suspect]
     Active Substance: ETONOGESTREL
     Indication: Contraception
     Dosage: OTHER QUANTITY : 1 IMPLANT;?OTHER FREQUENCY : Q3YEARS;?
     Route: 058
     Dates: start: 20190807, end: 20220407

REACTIONS (4)
  - Mood swings [None]
  - Depression [None]
  - Suicidal ideation [None]
  - Apathy [None]

NARRATIVE: CASE EVENT DATE: 20220221
